FAERS Safety Report 26135674 (Version 1)
Quarter: 2025Q4

REPORT INFORMATION
  Report Type: Spontaneous
  Country: US (occurrence: None)
  Receive Date: 20251209
  Receipt Date: 20251209
  Transmission Date: 20260117
  Serious: No
  Sender: FDA-CTU
  Company Number: None

PATIENT
  Age: 55 Year
  Sex: Male
  Weight: 104.4 kg

DRUGS (1)
  1. GLYCINE\TIRZEPATIDE [Suspect]
     Active Substance: GLYCINE\TIRZEPATIDE
     Indication: Obesity
     Dosage: FREQUENCY : WEEKLY;
     Route: 058
     Dates: start: 20251016, end: 20251204

REACTIONS (4)
  - Drug ineffective [None]
  - Hunger [None]
  - Weight loss poor [None]
  - Product quality issue [None]

NARRATIVE: CASE EVENT DATE: 20251117
